FAERS Safety Report 7453377-7 (Version None)
Quarter: 2011Q2

REPORT INFORMATION
  Report Type: 
  Country: None (occurrence: None)
  Receive Date: 20110502
  Receipt Date: 20110428
  Transmission Date: 20111010
  Serious: Yes (Other)
  Sender: FDA-Public Use
  Company Number: CHPA2011US06091

PATIENT
  Age: 69 Year
  Sex: Female

DRUGS (1)
  1. BENEFIBER SUGAR FREE [Suspect]
     Indication: IRRITABLE BOWEL SYNDROME
     Dosage: 1 DF, TID
     Route: 048
     Dates: start: 20110420, end: 20110427

REACTIONS (2)
  - OFF LABEL USE [None]
  - HYPERTENSION [None]
